FAERS Safety Report 7215144-9 (Version None)
Quarter: 2011Q1

REPORT INFORMATION
  Report Type: 
  Country: None (occurrence: None)
  Receive Date: 20110107
  Receipt Date: 20101108
  Transmission Date: 20110831
  Serious: No
  Sender: FDA-Public Use
  Company Number: A0880843A

PATIENT
  Age: 70 Year
  Sex: Female

DRUGS (4)
  1. ENALAPRIL [Concomitant]
  2. LOVAZA [Suspect]
     Indication: BLOOD CHOLESTEROL INCREASED
     Dosage: 1G TWICE PER DAY
     Route: 048
  3. ULTRAM [Concomitant]
  4. PRILOSEC [Concomitant]

REACTIONS (4)
  - PRODUCT COLOUR ISSUE [None]
  - SKIN ODOUR ABNORMAL [None]
  - PRODUCT ODOUR ABNORMAL [None]
  - PRODUCT QUALITY ISSUE [None]
